FAERS Safety Report 6576102-0 (Version None)
Quarter: 2010Q1

REPORT INFORMATION
  Report Type: 
  Country: None (occurrence: None)
  Receive Date: 20100209
  Receipt Date: 20100208
  Transmission Date: 20100710
  Serious: Yes (Death, Other)
  Sender: FDA-Public Use
  Company Number: GB-ELI_LILLY_AND_COMPANY-GB201002001977

PATIENT
  Sex: Male

DRUGS (2)
  1. ALIMTA [Suspect]
     Indication: NON-SMALL CELL LUNG CANCER
     Dosage: UNK, UNK
     Dates: start: 20090101
  2. CARBOPLATIN [Concomitant]
     Indication: NON-SMALL CELL LUNG CANCER

REACTIONS (3)
  - NEUTROPENIC SEPSIS [None]
  - PNEUMONIA [None]
  - RENAL FAILURE [None]
